FAERS Safety Report 5943823-X (Version None)
Quarter: 2008Q4

REPORT INFORMATION
  Report Type: 
  Country: None (occurrence: None)
  Receive Date: 20081106
  Receipt Date: 20081031
  Transmission Date: 20090506
  Serious: Yes (Death, Other)
  Sender: FDA-Public Use
  Company Number: US-BAXTER-2008BH011802

PATIENT
  Sex: Male

DRUGS (1)
  1. HEPARIN SODIUM INJECTION [Suspect]
     Indication: STENT PLACEMENT
     Dosage: DOSE UNIT:UNKNOWN
     Route: 040
     Dates: start: 20080301, end: 20080301

REACTIONS (4)
  - ASPIRATION [None]
  - NAUSEA [None]
  - PNEUMONIA [None]
  - VOMITING [None]
